FAERS Safety Report 9439719 (Version 1)
Quarter: 2013Q3

REPORT INFORMATION
  Report Type: Spontaneous
  Country: GB (occurrence: GB)
  Receive Date: 20130805
  Receipt Date: 20130805
  Transmission Date: 20140515
  Serious: Yes (Hospitalization)
  Sender: FDA-Public Use
  Company Number: GB-AMGEN-GBRSP2013053823

PATIENT
  Age: 88 Year
  Sex: Female

DRUGS (7)
  1. PROLIA [Suspect]
     Indication: OSTEOPATHIC TREATMENT
     Dosage: 60 MG, UNK
     Route: 058
     Dates: start: 20130617
  2. ADCAL D3 [Concomitant]
  3. AMITRIPTYLINE [Concomitant]
  4. CO CODAMOL [Concomitant]
  5. GABAPENIN [Concomitant]
  6. LANSOPRAZOLE [Concomitant]
  7. PARACETAMOL [Concomitant]

REACTIONS (5)
  - Sensory disturbance [Not Recovered/Not Resolved]
  - Periarthritis [Not Recovered/Not Resolved]
  - Feeling abnormal [Unknown]
  - Musculoskeletal pain [Unknown]
  - Pain in extremity [Not Recovered/Not Resolved]
